FAERS Safety Report 18104665 (Version 1)
Quarter: 2020Q3

REPORT INFORMATION
  Report Type: Other
  Country: US (occurrence: US)
  Receive Date: 20200803
  Receipt Date: 20200803
  Transmission Date: 20201103
  Serious: Yes (Hospitalization, Other)
  Sender: FDA-Public Use
  Company Number: US-AMNEAL PHARMACEUTICALS-2020-AMRX-02258

PATIENT

DRUGS (2)
  1. METFORMIN HYDROCHLORIDE. [Suspect]
     Active Substance: METFORMIN HYDROCHLORIDE
     Dosage: 500 MG, UNK
     Route: 048
     Dates: start: 20200606
  2. METFORMIN HYDROCHLORIDE. [Suspect]
     Active Substance: METFORMIN HYDROCHLORIDE
     Indication: PRODUCT USED FOR UNKNOWN INDICATION
     Dosage: 750 MG, 1 TAB IN MORNING, 1 TAB AT EVENING
     Route: 048
     Dates: start: 20200227, end: 2020

REACTIONS (8)
  - Hepatomegaly [Unknown]
  - Hepatic pain [Unknown]
  - Musculoskeletal chest pain [Unknown]
  - Abdominal pain upper [Not Recovered/Not Resolved]
  - Kidney enlargement [Unknown]
  - Cystitis [Unknown]
  - Flank pain [Unknown]
  - Blood urine present [Unknown]

NARRATIVE: CASE EVENT DATE: 2020
